FAERS Safety Report 21221498 (Version 3)
Quarter: 2025Q1

REPORT INFORMATION
  Report Type: Spontaneous
  Country: CA (occurrence: None)
  Receive Date: 20220817
  Receipt Date: 20250321
  Transmission Date: 20250408
  Serious: Yes (Other)
  Sender: ORION
  Company Number: CA-PFIZER INC-202201054174

PATIENT
  Age: 47 Year
  Sex: Female
  Weight: 48.5 kg

DRUGS (5)
  1. METHOTREXATE [Suspect]
     Active Substance: METHOTREXATE
     Indication: Product used for unknown indication
     Dates: start: 2018, end: 202207
  2. METHOTREXATE [Suspect]
     Active Substance: METHOTREXATE
     Dates: start: 2018, end: 202207
  3. RUXIENCE [Concomitant]
     Active Substance: RITUXIMAB-PVVR
     Indication: Rheumatoid arthritis
  4. BIOCARBON [Concomitant]
     Indication: Sjogren^s syndrome
  5. ETANERCEPT [Concomitant]
     Active Substance: ETANERCEPT
     Dates: start: 2018

REACTIONS (3)
  - Fatigue [Unknown]
  - Anaemia [Unknown]
  - Drug intolerance [Unknown]
